FAERS Safety Report 13389456 (Version 3)
Quarter: 2017Q2

REPORT INFORMATION
  Report Type: Spontaneous
  Country: US (occurrence: US)
  Receive Date: 20170330
  Receipt Date: 20170420
  Transmission Date: 20170830
  Serious: Yes (Other)
  Sender: FDA-Public Use
  Company Number: US-ELI_LILLY_AND_COMPANY-US201703011631

PATIENT
  Sex: Female
  Weight: 80.7 kg

DRUGS (5)
  1. TYVASO [Suspect]
     Active Substance: TREPROSTINIL
     Indication: PULMONARY ARTERIAL HYPERTENSION
     Dosage: 1 DF, QID
     Route: 055
  2. ADCIRCA [Suspect]
     Active Substance: TADALAFIL
     Dosage: 36 UG, QID
     Route: 055
  3. COUMADIN [Concomitant]
     Active Substance: WARFARIN SODIUM
  4. ADCIRCA [Suspect]
     Active Substance: TADALAFIL
     Indication: PULMONARY HYPERTENSION
     Dosage: UNK, UNKNOWN
     Route: 055
  5. LETAIRIS [Suspect]
     Active Substance: AMBRISENTAN
     Indication: PULMONARY ARTERIAL HYPERTENSION
     Dosage: 10 MG, QD
     Route: 065

REACTIONS (36)
  - Laryngeal polyp [Not Recovered/Not Resolved]
  - Cough [Not Recovered/Not Resolved]
  - Bronchitis [Unknown]
  - Vomiting [Recovered/Resolved]
  - Pain in extremity [Not Recovered/Not Resolved]
  - Vomiting [Unknown]
  - Heart rate increased [Unknown]
  - Nasal congestion [Unknown]
  - Laryngeal oedema [Not Recovered/Not Resolved]
  - Flushing [Not Recovered/Not Resolved]
  - Nausea [Unknown]
  - Dyspnoea [Unknown]
  - Regurgitation [Unknown]
  - Dysphonia [Recovering/Resolving]
  - Gastroenteritis viral [Unknown]
  - Pain [Unknown]
  - Headache [Unknown]
  - Pain in extremity [Unknown]
  - Chest discomfort [Unknown]
  - Pyrexia [Unknown]
  - Chills [Unknown]
  - Dysphagia [Unknown]
  - Hypotension [Unknown]
  - Dizziness [Unknown]
  - Rash pruritic [Unknown]
  - Peripheral swelling [Unknown]
  - Poor peripheral circulation [Not Recovered/Not Resolved]
  - Fatigue [Unknown]
  - Hiatus hernia [Unknown]
  - Constipation [Unknown]
  - Skin fissures [Unknown]
  - Respiration abnormal [Unknown]
  - Joint swelling [Unknown]
  - Diarrhoea [Not Recovered/Not Resolved]
  - Vocal cord thickening [Not Recovered/Not Resolved]
  - Oedema peripheral [Not Recovered/Not Resolved]
